FAERS Safety Report 7434170-8 (Version None)
Quarter: 2011Q2

REPORT INFORMATION
  Report Type: 
  Country: None (occurrence: None)
  Receive Date: 20110425
  Receipt Date: 20110418
  Transmission Date: 20111010
  Serious: No
  Sender: FDA-Public Use
  Company Number: US-PFIZER INC-2011085143

PATIENT
  Sex: Female
  Weight: 63.492 kg

DRUGS (3)
  1. DEPO-PROVERA [Suspect]
     Indication: OESTROGEN THERAPY
  2. DEPO-PROVERA [Suspect]
     Indication: OFF LABEL USE
     Dosage: UNK
     Dates: start: 20101201, end: 20101201
  3. MULTI-VITAMINS [Concomitant]
     Dosage: UNK

REACTIONS (1)
  - METRORRHAGIA [None]
